FAERS Safety Report 13339978 (Version 1)
Quarter: 2017Q1

REPORT INFORMATION
  Report Type: Report from Study
  Country: IS (occurrence: IS)
  Receive Date: 20170316
  Receipt Date: 20170316
  Transmission Date: 20170428
  Serious: Yes (Hospitalization, Other)
  Sender: FDA-Public Use
  Company Number: IS-ROCHE-1902859

PATIENT

DRUGS (2)
  1. RIBAVIRIN. [Suspect]
     Active Substance: RIBAVIRIN
     Indication: HEPATITIS C
     Dosage: IN A FIXED DOSE (GENOTYPES 2 AND 3) OR DOSED ACCORDING TO BODY WEIGHT (GENOTYPE 1)
     Route: 048
  2. PEG-INTERFERON ALFA 2A [Suspect]
     Active Substance: PEGINTERFERON ALFA-2A
     Indication: HEPATITIS C
     Dosage: FIXED DOSE WEEKLY
     Route: 058

REACTIONS (11)
  - Gastrointestinal disorder [Unknown]
  - Therapy non-responder [Unknown]
  - Malaise [Unknown]
  - Treatment noncompliance [Unknown]
  - Hepatic failure [Unknown]
  - Neutropenia [Unknown]
  - Anaemia [Unknown]
  - Pruritus [Unknown]
  - Arthritis [Unknown]
  - Mental disorder [Unknown]
  - Hepatocellular carcinoma [Unknown]
